FAERS Safety Report 24838129 (Version 1)
Quarter: 2025Q1

REPORT INFORMATION
  Report Type: Spontaneous
  Country: AR (occurrence: AR)
  Receive Date: 20250113
  Receipt Date: 20250113
  Transmission Date: 20250409
  Serious: Yes (Other)
  Sender: PFIZER
  Company Number: AR-PFIZER INC-202500006379

PATIENT
  Age: 75 Year
  Sex: Female

DRUGS (2)
  1. IBRANCE [Suspect]
     Active Substance: PALBOCICLIB
     Indication: Breast cancer metastatic
     Dates: start: 20211207, end: 20241111
  2. PALBOCICLIB [Suspect]
     Active Substance: PALBOCICLIB
     Dates: start: 202411

REACTIONS (3)
  - Intra-abdominal haemorrhage [Unknown]
  - Vaginal haemorrhage [Unknown]
  - Gingival bleeding [Unknown]

NARRATIVE: CASE EVENT DATE: 20241101
